FAERS Safety Report 6213973-1 (Version None)
Quarter: 2009Q2

REPORT INFORMATION
  Report Type: 
  Country: None (occurrence: None)
  Receive Date: 20090604
  Receipt Date: 20090601
  Transmission Date: 20091009
  Serious: Yes (Other)
  Sender: FDA-Public Use
  Company Number: US-JNJFOC-20090600711

PATIENT
  Age: 74 Year
  Sex: Female
  Weight: 77.11 kg

DRUGS (4)
  1. IMODIUM MULTI-SYMPTOM RELIEF [Suspect]
     Route: 048
  2. IMODIUM MULTI-SYMPTOM RELIEF [Suspect]
     Indication: PROPHYLAXIS
     Dosage: 1-2 CAPLETS 3 TIMES A WEEK
     Route: 048
  3. SALMETEROL XINAFOATE [Concomitant]
     Indication: ASTHMA
     Dosage: 2 PUFFS ONCE DAILY SINCE MANY YEARS
  4. FLOVENT [Concomitant]
     Indication: ASTHMA
     Dosage: 2 PUFFS TWICE A DAY SINCE MANY YEARS

REACTIONS (3)
  - DYSURIA [None]
  - INAPPROPRIATE SCHEDULE OF DRUG ADMINISTRATION [None]
  - URINARY RETENTION [None]
